FAERS Safety Report 14563492 (Version 1)
Quarter: 2018Q1

REPORT INFORMATION
  Report Type: Spontaneous
  Country: US (occurrence: US)
  Receive Date: 20180222
  Receipt Date: 20180222
  Transmission Date: 20180509
  Serious: Yes (Other)
  Sender: FDA-Public Use
  Company Number: None

PATIENT
  Age: 54 Year
  Sex: Male
  Weight: 49.9 kg

DRUGS (1)
  1. BUPRENORPHINE/?NALAXONE 8-2MG [Suspect]
     Active Substance: BUPRENORPHINE\NALOXONE
     Indication: DRUG DEPENDENCE
     Dosage: DOSE - 8-2 MG?ROUTE - SUBLINGUAL TAB
     Route: 060
     Dates: start: 20180205, end: 20180216

REACTIONS (3)
  - Cough [None]
  - Vomiting [None]
  - Retching [None]

NARRATIVE: CASE EVENT DATE: 20180205
